FAERS Safety Report 7288603-0 (Version None)
Quarter: 2011Q1

REPORT INFORMATION
  Report Type: 
  Country: None (occurrence: None)
  Receive Date: 20110208
  Receipt Date: 20110208
  Transmission Date: 20110831
  Serious: No
  Sender: FDA-Public Use
  Company Number: None

PATIENT
  Age: 54 Year
  Sex: Male
  Weight: 147.3 kg

DRUGS (1)
  1. HYDROMORPHONE HCL [Suspect]
     Indication: PAIN
     Dosage: 0.2 MG PCA Q6 MIN PRN IV
     Route: 042
     Dates: start: 20110205, end: 20110207

REACTIONS (2)
  - DEVICE LEAKAGE [None]
  - DEVICE OCCLUSION [None]
